FAERS Safety Report 11755229 (Version 2)
Quarter: 2016Q2

REPORT INFORMATION
  Report Type: Report from Study
  Country: US (occurrence: US)
  Receive Date: 20151119
  Receipt Date: 20160530
  Transmission Date: 20160815
  Serious: Yes (Other)
  Sender: FDA-Public Use
  Company Number: US-AMGEN-USASL2015119953

PATIENT
  Age: 67 Year
  Sex: Male

DRUGS (1)
  1. ENBREL [Suspect]
     Active Substance: ETANERCEPT
     Indication: PSORIATIC ARTHROPATHY
     Dosage: 50 MG, UNK
     Route: 065
     Dates: start: 20120412

REACTIONS (3)
  - Fall [Unknown]
  - Pain [Not Recovered/Not Resolved]
  - Knee arthroplasty [Unknown]
